FAERS Safety Report 14259181 (Version 2)
Quarter: 2018Q1

REPORT INFORMATION
  Report Type: Spontaneous
  Country: US (occurrence: US)
  Receive Date: 20171207
  Receipt Date: 20180215
  Transmission Date: 20180508
  Serious: Yes (Other)
  Sender: FDA-Public Use
  Company Number: US-JNJFOC-20171206869

PATIENT
  Sex: Male

DRUGS (3)
  1. INVOKANA [Suspect]
     Active Substance: CANAGLIFLOZIN
     Indication: DIABETES MELLITUS
     Route: 048
     Dates: start: 201408, end: 201611
  2. LANTUS [Concomitant]
     Active Substance: INSULIN GLARGINE
     Indication: DIABETES MELLITUS
     Dosage: 100 UNITS - 2 X DAILY
     Route: 065
     Dates: start: 2013
  3. NOVOLOG [Concomitant]
     Active Substance: INSULIN ASPART
     Indication: DIABETES MELLITUS
     Dosage: 100 UNITS - 2 X DAILY
     Route: 065
     Dates: start: 2013

REACTIONS (3)
  - Diabetic ulcer [Unknown]
  - Depression [Unknown]
  - Foot amputation [Unknown]

NARRATIVE: CASE EVENT DATE: 2016
